FAERS Safety Report 11757313 (Version 1)
Quarter: 2015Q4

REPORT INFORMATION
  Report Type: Report from Study
  Country: BR (occurrence: BR)
  Receive Date: 20151120
  Receipt Date: 20151120
  Transmission Date: 20160304
  Serious: Yes (Other)
  Sender: FDA-Public Use
  Company Number: PHHY2015BR150779

PATIENT
  Sex: Male
  Weight: 60 kg

DRUGS (2)
  1. DIOVAN [Suspect]
     Active Substance: VALSARTAN
     Indication: HYPERTENSION
     Dosage: 2 DF, BID
     Route: 048
  2. DIOVAN [Suspect]
     Active Substance: VALSARTAN
     Dosage: 0.5 DF, BID (IN THE MORNING AND IN THE EVENING)

REACTIONS (7)
  - Balance disorder [Recovering/Resolving]
  - Off label use [Recovering/Resolving]
  - Weight decreased [Unknown]
  - Weight increased [Unknown]
  - Blood pressure decreased [Recovering/Resolving]
  - Dementia Alzheimer^s type [Unknown]
  - Apathy [Unknown]
